FAERS Safety Report 4993053-3 (Version None)
Quarter: 2006Q1

REPORT INFORMATION
  Report Type: 
  Country: None (occurrence: None)
  Receive Date: 20060313
  Receipt Date: 20051129
  Transmission Date: 20060701
  Serious: No
  Sender: FDA-Public Use
  Company Number: 2005-BP-16658BP

PATIENT
  Age: 69 Year
  Sex: Male

DRUGS (12)
  1. SPIRIVA [Suspect]
     Indication: CHRONIC OBSTRUCTIVE PULMONARY DISEASE
     Dosage: 18 MCG (18 MCG,1 IN 1 D),IH
     Dates: start: 20050228
  2. AVAPRO [Concomitant]
  3. NORVASC [Concomitant]
  4. TERAZOSIN (TERAZOSIN) [Concomitant]
  5. ISOSORBIDE (ISOSORBIDE) [Concomitant]
  6. PRAVACHOL [Concomitant]
  7. ALLOPURINOL [Concomitant]
  8. GLUCOPHAGE [Concomitant]
  9. ASPIRIN [Concomitant]
  10. FUROSEMIDE [Concomitant]
  11. IMDUR [Concomitant]
  12. FLOMAX (MORNIFLUMATE) [Concomitant]

REACTIONS (1)
  - DYSPNOEA [None]
